FAERS Safety Report 5195601-X (Version None)
Quarter: 2007Q1

REPORT INFORMATION
  Report Type: 
  Country: None (occurrence: None)
  Receive Date: 20070102
  Receipt Date: 20061222
  Transmission Date: 20070707
  Serious: Yes (Hospitalization)
  Sender: FDA-Public Use
  Company Number: NO-AVENTIS-200622947GDDC

PATIENT
  Age: 38 Year
  Sex: Female

DRUGS (3)
  1. DESMOPRESSIN [Suspect]
     Indication: HORMONE REPLACEMENT THERAPY
  2. LEVOTHYROXINE SODIUM [Concomitant]
     Indication: HORMONE REPLACEMENT THERAPY
  3. CORTISONE ACETATE [Concomitant]
     Indication: HORMONE REPLACEMENT THERAPY

REACTIONS (8)
  - CONFUSIONAL STATE [None]
  - DEMYELINATION [None]
  - HEADACHE [None]
  - HYPONATRAEMIA [None]
  - INCORRECT DOSE ADMINISTERED [None]
  - OVERDOSE [None]
  - PULMONARY EMBOLISM [None]
  - WATER INTOXICATION [None]
